FAERS Safety Report 5387656-4 (Version None)
Quarter: 2007Q3

REPORT INFORMATION
  Report Type: 
  Country: None (occurrence: None)
  Receive Date: 20070712
  Receipt Date: 20070629
  Transmission Date: 20080115
  Serious: Yes (Other)
  Sender: FDA-Public Use
  Company Number: 2007EU001521

PATIENT
  Age: 68 Year
  Sex: Male

DRUGS (1)
  1. VESICARE [Suspect]
     Indication: MICTURITION URGENCY
     Dosage: 5 MG, UID/QD, ORAL
     Route: 048
     Dates: start: 20070326, end: 20070330

REACTIONS (1)
  - SOMNOLENCE [None]
